FAERS Safety Report 7251428-6 (Version None)
Quarter: 2011Q1

REPORT INFORMATION
  Report Type: 
  Country: None (occurrence: None)
  Receive Date: 20110128
  Receipt Date: 20110117
  Transmission Date: 20110831
  Serious: Yes (Other)
  Sender: FDA-Public Use
  Company Number: PHHY2011FR03448

PATIENT
  Age: 32 Year
  Sex: Male

DRUGS (3)
  1. IMATINIB [Suspect]
     Dosage: 150 MG, OD
  2. IMATINIB [Suspect]
     Indication: HYPEREOSINOPHILIC SYNDROME
     Dosage: 200 MG, OD
     Dates: start: 20060101, end: 20080601
  3. IMATINIB [Suspect]
     Dosage: 100 MG, OD
     Dates: start: 20070101

REACTIONS (2)
  - MYOPATHY TOXIC [None]
  - EOSINOPHILIA [None]
